FAERS Safety Report 15459392 (Version 2)
Quarter: 2019Q1

REPORT INFORMATION
  Report Type: Spontaneous
  Country: JP (occurrence: JP)
  Receive Date: 20181003
  Receipt Date: 20190115
  Transmission Date: 20190417
  Serious: Yes (Hospitalization)
  Sender: FDA-Public Use
  Company Number: JP-ASTRAZENECA-2018SF27641

PATIENT
  Age: 76 Year
  Sex: Male
  Weight: 43.8 kg

DRUGS (2)
  1. LIXIANA [Concomitant]
     Active Substance: EDOXABAN TOSYLATE
     Dosage: DOSE UNKNOWN
     Route: 065
  2. NEXIUM [Suspect]
     Active Substance: ESOMEPRAZOLE MAGNESIUM
     Route: 048

REACTIONS (1)
  - Shunt stenosis [Recovering/Resolving]

NARRATIVE: CASE EVENT DATE: 20170625
